FAERS Safety Report 10408530 (Version 1)
Quarter: 2014Q3

REPORT INFORMATION
  Report Type: Spontaneous
  Country: US (occurrence: None)
  Receive Date: 20140822
  Receipt Date: 20140822
  Transmission Date: 20150326
  Serious: Yes (Disabling, Other)
  Sender: FDA-Public Use
  Company Number: None

PATIENT
  Age: 51 Year
  Sex: Female
  Weight: 86.18 kg

DRUGS (1)
  1. CYMBALTA [Suspect]
     Active Substance: DULOXETINE HYDROCHLORIDE
     Indication: MAJOR DEPRESSION
     Dosage: 2 30MG CAPSULES ONCE DAILY TAKEN BY MOUTH
     Route: 048
     Dates: start: 20140409, end: 20140813

REACTIONS (6)
  - Decreased activity [None]
  - Dizziness [None]
  - Hyperhidrosis [None]
  - Crying [None]
  - Diarrhoea [None]
  - Anxiety [None]

NARRATIVE: CASE EVENT DATE: 20140820
